FAERS Safety Report 5812878-5 (Version None)
Quarter: 2008Q3

REPORT INFORMATION
  Report Type: 
  Country: None (occurrence: None)
  Receive Date: 20080717
  Receipt Date: 20080708
  Transmission Date: 20090109
  Serious: Yes (Other)
  Sender: FDA-Public Use
  Company Number: NSADSS2003011800

PATIENT
  Sex: Female

DRUGS (14)
  1. REMICADE [Suspect]
     Route: 041
     Dates: start: 20010403
  2. REMICADE [Suspect]
     Indication: RHEUMATOID ARTHRITIS
     Route: 041
     Dates: start: 20010403
  3. ISONIAZID [Concomitant]
  4. PREDNISONE TAB [Concomitant]
     Route: 048
  5. ACCUPRIL [Concomitant]
  6. ACTONEL [Concomitant]
  7. FOLIC ACID [Concomitant]
  8. CALCIUM + D [Concomitant]
  9. PREMPRO [Concomitant]
  10. HYDROXYZINE [Concomitant]
  11. TYLENOL [Concomitant]
  12. ARAVA [Concomitant]
     Route: 048
     Dates: start: 20010111
  13. METHOTREXATE [Concomitant]
     Route: 048
     Dates: start: 20010716
  14. AZULFIDINE EN-TABS [Concomitant]
     Route: 048
     Dates: start: 20020701

REACTIONS (1)
  - TUBERCULOSIS [None]
